FAERS Safety Report 9829322 (Version 3)
Quarter: 2014Q1

REPORT INFORMATION
  Report Type: Report from Study
  Country: CA (occurrence: CA)
  Receive Date: 20140120
  Receipt Date: 20140128
  Transmission Date: 20141002
  Serious: Yes (Other)
  Sender: FDA-Public Use
  Company Number: CA-ROCHE-1215728

PATIENT
  Age: 73 Year
  Sex: Female
  Weight: 59.9 kg

DRUGS (5)
  1. RITUXAN [Suspect]
     Indication: RHEUMATOID ARTHRITIS
     Route: 042
     Dates: start: 20130415
  2. ACETAMINOPHEN [Concomitant]
     Route: 048
     Dates: start: 20130415
  3. INDOMETHACIN [Concomitant]
     Route: 065
  4. DIPHENHYDRAMINE HCL [Concomitant]
     Route: 048
     Dates: start: 20130415
  5. METHYLPREDNISOLONE [Concomitant]
     Route: 042
     Dates: start: 20130415

REACTIONS (3)
  - Injury [Unknown]
  - Blood pressure fluctuation [Not Recovered/Not Resolved]
  - Fall [Unknown]
